FAERS Safety Report 11142556 (Version 9)
Quarter: 2015Q4

REPORT INFORMATION
  Report Type: Spontaneous
  Country: US (occurrence: US)
  Receive Date: 20150527
  Receipt Date: 20151202
  Transmission Date: 20160304
  Serious: Yes (Death, Hospitalization)
  Sender: FDA-Public Use
  Company Number: US-ACTELION-A-US2015-115113

PATIENT
  Age: 28 Year
  Sex: Male

DRUGS (9)
  1. VELETRI [Suspect]
     Active Substance: EPOPROSTENOL
     Indication: PULMONARY ARTERIAL HYPERTENSION
     Dosage: 33 NG/KG, PER MIN
     Route: 042
     Dates: end: 20151102
  2. VELETRI [Suspect]
     Active Substance: EPOPROSTENOL
     Dosage: 27 NG/KG PER MIN
     Route: 042
  3. VELETRI [Suspect]
     Active Substance: EPOPROSTENOL
     Dosage: 29 NG/KG PER MIN
     Route: 042
     Dates: start: 20131023
  4. REVATIO [Concomitant]
     Active Substance: SILDENAFIL CITRATE
  5. ADCIRCA [Concomitant]
     Active Substance: TADALAFIL
  6. POTASSIUM [Concomitant]
     Active Substance: POTASSIUM
  7. VELETRI [Suspect]
     Active Substance: EPOPROSTENOL
     Dosage: 21 NG/KG, PER MIN
     Route: 042
     Dates: start: 20131023
  8. LETAIRIS [Concomitant]
     Active Substance: AMBRISENTAN
  9. VELETRI [Suspect]
     Active Substance: EPOPROSTENOL
     Dosage: 20 NG/KG, PER MIN
     Route: 042
     Dates: start: 20140127

REACTIONS (27)
  - Cough [Unknown]
  - Headache [Unknown]
  - Blood potassium increased [Recovered/Resolved]
  - Device dislocation [Recovered/Resolved]
  - Vomiting [Unknown]
  - Pulseless electrical activity [Fatal]
  - Chills [Unknown]
  - Drug dose omission [Unknown]
  - Right ventricular dysfunction [Unknown]
  - Endotracheal intubation [Unknown]
  - Disease progression [Unknown]
  - Medical device change [Recovered/Resolved]
  - Device use error [Unknown]
  - Haemoptysis [Unknown]
  - Bacterial infection [Unknown]
  - Back pain [Unknown]
  - Pulmonary arterial pressure abnormal [Unknown]
  - Chest pain [Unknown]
  - Blood culture positive [Unknown]
  - Dyspnoea [Unknown]
  - Medical device complication [Recovered/Resolved]
  - Incorrect dose administered [Recovered/Resolved]
  - Staphylococcal bacteraemia [Unknown]
  - Cardiac failure [Unknown]
  - Asthenia [Unknown]
  - Device malfunction [Unknown]
  - Cardiogenic shock [Fatal]

NARRATIVE: CASE EVENT DATE: 20150307
